FAERS Safety Report 8835957 (Version 1)
Quarter: 2012Q4

REPORT INFORMATION
  Report Type: 
  Country: US (occurrence: US)
  Receive Date: 20121011
  Receipt Date: 20121011
  Transmission Date: 20130627
  Serious: No
  Sender: FDA-Public Use
  Company Number: US-PFIZER INC-2012247705

PATIENT
  Age: 44 Year
  Sex: Female
  Weight: 65.8 kg

DRUGS (9)
  1. LEVONORGESTREL, ETHINYL ESTRADIOL [Suspect]
     Indication: MENORRHAGIA
     Dosage: 90/20 mcg, daily
     Dates: start: 2011, end: 2011
  2. LEVONORGESTREL, ETHINYL ESTRADIOL [Suspect]
     Indication: MOOD SWINGS
  3. LEVONORGESTREL, ETHINYL ESTRADIOL [Suspect]
     Indication: LOSS OF CONSCIOUSNESS
  4. LEVONORGESTREL, ETHINYL ESTRADIOL [Suspect]
     Indication: MALAISE
  5. LEVOTHYROXINE [Concomitant]
     Indication: RHEUMATOID ARTHRITIS
     Dosage: 75 ug, daily
  6. HYDROXYCHLOROQUINE [Concomitant]
     Dosage: 200 mg, 2x/day
  7. CELEBREX [Concomitant]
     Dosage: 200 mg, 2x/day
  8. METHOTREXATE [Concomitant]
     Dosage: 2.5 mg, daily
  9. LEFLUNOMIDE [Concomitant]
     Dosage: 20 mg, daily

REACTIONS (3)
  - Metrorrhagia [Recovered/Resolved]
  - Drug administration error [Recovered/Resolved]
  - Drug ineffective for unapproved indication [Recovered/Resolved]
